FAERS Safety Report 8607029-8 (Version None)
Quarter: 2012Q3

REPORT INFORMATION
  Report Type: 
  Country: None (occurrence: None)
  Receive Date: 20120821
  Receipt Date: 20120813
  Transmission Date: 20120928
  Serious: Yes (Life-Threatening, Hospitalization)
  Sender: FDA-Public Use
  Company Number: US-AMGEN-USASP2012005514

PATIENT
  Age: 54 Year
  Sex: Female
  Weight: 68 kg

DRUGS (13)
  1. TYLENOL (CAPLET) [Concomitant]
     Dosage: 650 MG, UNK
  2. CARBOPLATIN [Suspect]
     Indication: BREAST CANCER
     Dosage: 6 DF, PER CHEMO REGIM
     Route: 042
     Dates: start: 20110811
  3. DOXORUBICIN HCL [Suspect]
     Indication: BREAST CANCER
     Dosage: 60 MG/M2, UNK
     Route: 042
     Dates: start: 20111110
  4. PACLITAXEL [Suspect]
     Indication: BREAST CANCER
     Dosage: 80 MG/M2, PER CHEMO REGIM
     Route: 042
     Dates: start: 20110811
  5. EMEND [Concomitant]
  6. BEVACIZUMAB [Suspect]
     Indication: BREAST CANCER
     Dosage: 10 MG/KG, PER CHEMO REGIM
     Route: 042
     Dates: start: 20110811
  7. CYCLOPHOSPHAMIDE [Suspect]
     Indication: BREAST CANCER
     Dosage: 600 MG/M2, UNK
     Route: 042
     Dates: start: 20111110
  8. LEVAQUIN [Concomitant]
  9. DECADRON [Concomitant]
     Dosage: 10 MG, UNK
     Dates: start: 20111110
  10. ZOFRAN                             /00955302/ [Concomitant]
  11. ALOXI [Concomitant]
  12. PEGFILGRASTIM [Suspect]
     Indication: CHEMOTHERAPY
     Dosage: 480 MUG, UNK
     Dates: start: 20111222
  13. COMPAZINE [Concomitant]

REACTIONS (7)
  - DEVICE RELATED INFECTION [None]
  - NEUTROPHIL COUNT DECREASED [None]
  - FEBRILE NEUTROPENIA [None]
  - WHITE BLOOD CELL COUNT DECREASED [None]
  - ANAEMIA [None]
  - PANCYTOPENIA [None]
  - PLATELET COUNT DECREASED [None]
